FAERS Safety Report 19651205 (Version 1)
Quarter: 2021Q3

REPORT INFORMATION
  Report Type: Spontaneous
  Country: FR (occurrence: FR)
  Receive Date: 20210803
  Receipt Date: 20210803
  Transmission Date: 20211014
  Serious: Yes (Hospitalization)
  Sender: FDA-Public Use
  Company Number: FR-TEVA-2021-FR-1938501

PATIENT
  Age: 13 Year
  Sex: Female

DRUGS (3)
  1. SKENAN [Suspect]
     Active Substance: MORPHINE SULFATE
     Indication: SUICIDE ATTEMPT
     Dosage: 2 TABS OF 30 MG, UNIT DOSE: 60 MG
     Route: 048
     Dates: start: 20210617, end: 20210617
  2. IBUPROFENE [Suspect]
     Active Substance: IBUPROFEN
     Indication: SUICIDE ATTEMPT
     Dosage: 10 DF
     Route: 048
     Dates: start: 20210617, end: 20210617
  3. DAFALGAN [Suspect]
     Active Substance: ACETAMINOPHEN
     Indication: SUICIDE ATTEMPT
     Dosage: 10 TABLETS, 5 GRAM
     Route: 048
     Dates: start: 20210617, end: 20210617

REACTIONS (4)
  - Abdominal pain [Recovered/Resolved]
  - Dysarthria [Recovered/Resolved]
  - Toxicity to various agents [Recovered/Resolved]
  - Gait disturbance [Recovered/Resolved]

NARRATIVE: CASE EVENT DATE: 20210617
